FAERS Safety Report 23789341 (Version 1)
Quarter: 2024Q2

REPORT INFORMATION
  Report Type: Spontaneous
  Country: MY (occurrence: None)
  Receive Date: 20240426
  Receipt Date: 20240426
  Transmission Date: 20240716
  Serious: Yes (Other)
  Sender: FDA-Public Use
  Company Number: 2024A095643

PATIENT
  Age: 72 Year
  Sex: Male

DRUGS (2)
  1. OMEPRAZOLE [Suspect]
     Active Substance: OMEPRAZOLE
     Route: 048
  2. BECLOMETHASONE [Suspect]
     Active Substance: BECLOMETHASONE
     Indication: Asthma
     Route: 055
     Dates: start: 2013

REACTIONS (1)
  - Atypical femur fracture [Recovering/Resolving]
